FAERS Safety Report 23816232 (Version 1)
Quarter: 2024Q2

REPORT INFORMATION
  Report Type: Spontaneous
  Country: US (occurrence: US)
  Receive Date: 20240503
  Receipt Date: 20240503
  Transmission Date: 20240717
  Serious: Yes (Disabling)
  Sender: FDA-Public Use
  Company Number: US-NOVOPROD-1190184

PATIENT

DRUGS (1)
  1. OZEMPIC [Suspect]
     Active Substance: SEMAGLUTIDE
     Indication: Diabetes mellitus
     Dosage: 0.5MG
     Route: 058

REACTIONS (3)
  - Disability [Unknown]
  - Constipation [Not Recovered/Not Resolved]
  - Wrong technique in product usage process [Unknown]
